FAERS Safety Report 7944001-5 (Version None)
Quarter: 2011Q4

REPORT INFORMATION
  Report Type: 
  Country: None (occurrence: None)
  Receive Date: 20111128
  Receipt Date: 20111115
  Transmission Date: 20120403
  Serious: Yes (Hospitalization, Other)
  Sender: FDA-Public Use
  Company Number: US-ASTRAZENECA-2010SE21995

PATIENT
  Age: 57 Year
  Sex: Male
  Weight: 77.1 kg

DRUGS (25)
  1. SEROQUEL [Suspect]
     Route: 048
     Dates: start: 20040101, end: 20100501
  2. SEROQUEL [Suspect]
     Route: 048
  3. SEROQUEL [Suspect]
     Route: 048
     Dates: start: 20100101, end: 20100201
  4. SEROQUEL [Suspect]
     Route: 048
     Dates: start: 20100101, end: 20100201
  5. SEROQUEL [Suspect]
     Route: 048
     Dates: start: 20100201, end: 20100101
  6. ROXICODONE [Concomitant]
     Indication: PAIN
     Dosage: 30 MG, THREE TIMES A DAY
     Route: 048
  7. OXYCONTIN [Concomitant]
  8. SEROQUEL [Suspect]
     Route: 048
  9. METHADONE HYDROCHLORIDE [Concomitant]
     Indication: PAIN
     Dosage: 5 PILLS A DAY
     Route: 048
  10. DRAMAMINE [Concomitant]
     Indication: ADJUVANT THERAPY
     Route: 048
  11. NAPROXEN [Concomitant]
  12. SEROQUEL [Suspect]
     Indication: HYPOMANIA
     Route: 048
     Dates: start: 20030101
  13. CLONAZEPAM [Concomitant]
     Route: 048
  14. SEROQUEL [Suspect]
     Route: 048
     Dates: start: 20040101, end: 20100501
  15. CLONIDINE [Concomitant]
     Indication: HYPERTENSION
  16. SEROQUEL [Suspect]
     Route: 048
     Dates: start: 20050101, end: 20100101
  17. SEROQUEL [Suspect]
     Route: 048
     Dates: start: 20100501
  18. ALPRAZOLAM [Concomitant]
  19. SEROQUEL [Suspect]
     Indication: BIPOLAR DISORDER
     Route: 048
     Dates: start: 20030101
  20. SEROQUEL [Suspect]
     Route: 048
     Dates: start: 20100501
  21. SEROQUEL [Suspect]
     Route: 048
  22. SEROQUEL [Suspect]
     Route: 048
     Dates: start: 20100201, end: 20100101
  23. SEROQUEL [Suspect]
     Route: 048
     Dates: start: 20050101, end: 20100101
  24. SEROQUEL [Suspect]
     Route: 048
  25. CRESTOR [Concomitant]

REACTIONS (36)
  - CONVULSION [None]
  - DRUG INTOLERANCE [None]
  - HAEMORRHAGE [None]
  - DEPRESSION [None]
  - BURNING SENSATION [None]
  - MYALGIA [None]
  - SOMNOLENCE [None]
  - INSOMNIA [None]
  - SENSORY DISTURBANCE [None]
  - HEAD INJURY [None]
  - EUPHORIC MOOD [None]
  - WRONG TECHNIQUE IN DRUG USAGE PROCESS [None]
  - DRUG DOSE OMISSION [None]
  - WRONG DRUG ADMINISTERED [None]
  - SYNCOPE [None]
  - DYSSTASIA [None]
  - BLOOD PRESSURE DECREASED [None]
  - LOSS OF CONSCIOUSNESS [None]
  - HANGOVER [None]
  - FEELING JITTERY [None]
  - BLINDNESS TRANSIENT [None]
  - URINARY RETENTION [None]
  - PALPITATIONS [None]
  - DECREASED APPETITE [None]
  - MOBILITY DECREASED [None]
  - INCORRECT DOSE ADMINISTERED [None]
  - MYOCARDIAL INFARCTION [None]
  - CARDIOVASCULAR DISORDER [None]
  - BIPOLAR I DISORDER [None]
  - DRY MOUTH [None]
  - VOMITING [None]
  - MANIA [None]
  - GASTRIC PERFORATION [None]
  - FALL [None]
  - BACK DISORDER [None]
  - MUSCLE SPASMS [None]
